FAERS Safety Report 4271467-7 (Version None)
Quarter: 2004Q1

REPORT INFORMATION
  Report Type: 
  Country: None (occurrence: None)
  Receive Date: 20040114
  Receipt Date: 20040114
  Transmission Date: 20041129
  Serious: Yes (Disabling)
  Sender: FDA-Public Use
  Company Number: None

PATIENT
  Sex: Female
  Weight: 52 kg

DRUGS (1)
  1. LARIAM [Suspect]
     Dosage: 1 WEEK ORAL
     Route: 048
     Dates: start: 20010701, end: 20010807

REACTIONS (7)
  - ANXIETY [None]
  - DEPRESSION [None]
  - EMOTIONAL DISORDER [None]
  - FEELING ABNORMAL [None]
  - HYPERACUSIS [None]
  - SLEEP DISORDER [None]
  - STRESS SYMPTOMS [None]
